FAERS Safety Report 4943373-3 (Version None)
Quarter: 2006Q1

REPORT INFORMATION
  Report Type: 
  Country: None (occurrence: None)
  Receive Date: 20060314
  Receipt Date: 20040609
  Transmission Date: 20060701
  Serious: Yes (Other)
  Sender: FDA-Public Use
  Company Number: 200412025JP

PATIENT
  Age: 44 Year
  Sex: Female
  Weight: 59 kg

DRUGS (8)
  1. ARAVA [Suspect]
     Indication: RHEUMATOID ARTHRITIS
     Route: 048
     Dates: start: 20031031, end: 20031102
  2. ARAVA [Suspect]
     Dosage: DOSE: UNK
     Route: 048
     Dates: start: 20031103, end: 20040514
  3. ARAVA [Suspect]
     Dosage: DOSE: UNK
     Route: 048
     Dates: start: 20040515
  4. MOBIC [Concomitant]
     Indication: RHEUMATOID ARTHRITIS
     Dosage: DOSE: UNK
     Route: 048
  5. ISALON [Concomitant]
     Indication: PROPHYLAXIS
     Dosage: DOSE: 2TABLETS
     Route: 048
  6. ISALON [Concomitant]
     Indication: ULCER
     Dosage: DOSE: 2TABLETS
     Route: 048
  7. PREDONINE [Concomitant]
     Indication: RHEUMATOID ARTHRITIS
     Dosage: DOSE: UNK
     Route: 048
  8. RHEUMATREX [Concomitant]
     Indication: RHEUMATOID ARTHRITIS
     Route: 048
     Dates: end: 20031026

REACTIONS (3)
  - MENORRHAGIA [None]
  - PLATELET COUNT DECREASED [None]
  - WHITE BLOOD CELL COUNT DECREASED [None]
